FAERS Safety Report 4397256-0 (Version None)
Quarter: 2004Q3

REPORT INFORMATION
  Report Type: 
  Country: None (occurrence: None)
  Receive Date: 20040708
  Receipt Date: 20040705
  Transmission Date: 20050211
  Serious: Yes (Disabling)
  Sender: FDA-Public Use
  Company Number: CAP04000112

PATIENT
  Age: 63 Year
  Sex: Female
  Weight: 72.6 kg

DRUGS (8)
  1. ACTONEL [Suspect]
     Indication: OSTEOPOROSIS
     Dosage: 35 MG ONCE WEEKLY, ORAL
     Route: 048
     Dates: start: 20020101, end: 20040401
  2. VITAMIN E [Concomitant]
  3. VITAMIN C [Concomitant]
  4. CALCIUM [Concomitant]
  5. PREMARIN [Concomitant]
  6. PROMETRIUM [Concomitant]
  7. . [Concomitant]
  8. . [Concomitant]

REACTIONS (4)
  - ASPARTATE AMINOTRANSFERASE INCREASED [None]
  - BLOOD CREATINE PHOSPHOKINASE INCREASED [None]
  - MUSCULAR WEAKNESS [None]
  - MYOPATHY [None]
